FAERS Safety Report 5678611-5 (Version None)
Quarter: 2008Q1

REPORT INFORMATION
  Report Type: 
  Country: None (occurrence: None)
  Receive Date: 20080325
  Receipt Date: 20080312
  Transmission Date: 20080703
  Serious: Yes (Hospitalization)
  Sender: FDA-Public Use
  Company Number: ES-AMGEN-US270000

PATIENT
  Age: 55 Year
  Sex: Male

DRUGS (6)
  1. ENBREL [Suspect]
     Indication: RHEUMATOID ARTHRITIS
     Route: 058
     Dates: start: 20050101
  2. ISONIAZID [Interacting]
     Indication: TUBERCULOSIS
     Route: 048
     Dates: start: 20050101
  3. PYRIDOXINE [Concomitant]
     Route: 065
  4. OMEPRAZOLE [Concomitant]
     Dosage: UNKNOWN
     Route: 065
  5. PIROXICAM [Concomitant]
     Dosage: UNKNOWN
     Route: 065
  6. DEFLAZACORT [Concomitant]
     Dosage: UNKNOWN
     Route: 065

REACTIONS (3)
  - DRUG INTERACTION [None]
  - HEADACHE [None]
  - OPTIC NEURITIS [None]
